FAERS Safety Report 4399395-7 (Version None)
Quarter: 2004Q3

REPORT INFORMATION
  Report Type: 
  Country: None (occurrence: None)
  Receive Date: 20040712
  Receipt Date: 20040625
  Transmission Date: 20050211
  Serious: Yes (Death)
  Sender: FDA-Public Use
  Company Number: 2004S1001879

PATIENT
  Age: 55 Year
  Sex: Female

DRUGS (7)
  1. CLOZAPINE [Suspect]
     Indication: AFFECTIVE DISORDER
     Dosage: 100 MG Q AM, 200 MG Q PM ORAL
     Route: 048
     Dates: start: 20031217, end: 20040529
  2. PROPRANOLOL [Concomitant]
  3. ESCITALOPRAM OXALATE [Concomitant]
  4. ESTRADIOL [Concomitant]
  5. LITHIUM [Concomitant]
  6. QUETIAPINE [Concomitant]
  7. CLONAZEPAM [Concomitant]

REACTIONS (1)
  - DEATH [None]
